FAERS Safety Report 22254113 (Version 1)
Quarter: 2023Q2

REPORT INFORMATION
  Report Type: Other
  Country: US (occurrence: None)
  Receive Date: 20230426
  Receipt Date: 20230426
  Transmission Date: 20230721
  Serious: Yes (Other)
  Sender: FDA-Public Use
  Company Number: US-ROCHE-3335333

PATIENT
  Age: 82 Year
  Sex: Female

DRUGS (42)
  1. VENCLEXTA [Suspect]
     Active Substance: VENETOCLAX
     Indication: Plasma cell myeloma
     Dosage: TAKE 4 TABLETS BY MOUTH ONCE DAILY. TAKE WITH FOOD AND WATER.
     Route: 048
  2. VENCLEXTA [Suspect]
     Active Substance: VENETOCLAX
     Indication: Plasmacytoma
  3. VALIUM [Suspect]
     Active Substance: DIAZEPAM
     Indication: Product used for unknown indication
     Route: 065
  4. TYLENOL [Concomitant]
     Active Substance: ACETAMINOPHEN
     Dosage: TAKE 650MG BY MOUTH EVERY 6 HOURS AS NEEDED (TAKING 325MG ALONG WITH A 500MG?TABLET)
     Route: 048
  5. ZOVIRAX [Concomitant]
     Active Substance: ACYCLOVIR
     Dosage: TAKE 0.5 TABLETS BY MOUTH TWICE DAILY
     Route: 048
  6. ZYLOPRIM [Concomitant]
     Active Substance: ALLOPURINOL
     Dosage: TAKE 1 TABLET BY MOUTH ONCE DAILY
     Route: 048
  7. ZYLOPRIM [Concomitant]
     Active Substance: ALLOPURINOL
     Dosage: TAKE 1 TABLET BY MOUTH ONCE DAILY
     Route: 048
  8. ALPHA LIPOIC ACID [Concomitant]
     Active Substance: .ALPHA.-LIPOIC ACID
     Dosage: TAKE 1 CAPSULE BY MOUTH ONCE DAILY
     Route: 048
  9. ARNICA MONTANA FLOWER [Concomitant]
     Active Substance: ARNICA MONTANA FLOWER
     Dosage: APPLY TO AFTECTED AREA
     Route: 061
  10. ASPIRIN [Concomitant]
     Active Substance: ASPIRIN
     Dosage: TAKE 1 TABLET BY MOUTH ONCE DAILY
  11. CALCIUM\CHOLECALCIFEROL [Concomitant]
     Active Substance: CALCIUM\CHOLECALCIFEROL
     Dosage: TAKE 1 CAPSULE BY MOUTH TWICE DAILY
     Route: 048
  12. CRANBERRY [Concomitant]
     Active Substance: CRANBERRY
     Dosage: TAKE 1 CAPSULE BY MOUTH ONCE DAILY
     Route: 048
  13. VITAMIN B12 [Concomitant]
     Active Substance: CYANOCOBALAMIN
     Dosage: TAKE 1 TABLET BY MOUTH ONCE DAILY
     Route: 048
  14. DECADRON [Concomitant]
     Active Substance: DEXAMETHASONE
     Dosage: TAKE 5 TABS ONCE WEEKLY
     Route: 048
  15. ROBITUSSIN COUGH DROPS [Concomitant]
     Dosage: TAKE 10ML BY MOUTH AS NEEDED
     Route: 048
  16. BMX [ALUMINIUM;DIPHENHYDRAMINE;LIDOCAINE;MAGNESIUM;SIMETHICONE] [Concomitant]
     Dosage: TAKE 5ML BY MOUTH EVERY 6 HOURS AS NEEDED
     Route: 048
  17. LASIX [Concomitant]
     Active Substance: FUROSEMIDE
     Route: 048
  18. NEURONTIN [Concomitant]
     Active Substance: GABAPENTIN
     Dosage: TAKE 1 CAPSULE BY MOUTH TWICE DAILY FOR 180 DAYS
     Route: 048
  19. GARLIC OIL [Concomitant]
     Active Substance: GARLIC OIL
     Dosage: TAKE 1 CAPSULE BY MOUTH ONCE DAILY
  20. GINGER [Concomitant]
     Active Substance: GINGER
     Dosage: 1 TABLET ONCE DAILY
  21. PROBIOTIC COMPLEX [Concomitant]
     Dosage: TAKE 1 TABLET BY MOUTH ONCE DAILY
  22. IMODIUM [Concomitant]
     Active Substance: LOPERAMIDE HYDROCHLORIDE
     Dosage: TAKE 2MG BY MOUTH AS NEEDED
  23. MILK OF MAGNESIA [Concomitant]
     Active Substance: MAGNESIUM HYDROXIDE
     Dosage: TAKE 30 ML BY MOUTH AS NEEDED
  24. MYCOSTATIN [Concomitant]
     Active Substance: NYSTATIN
     Dosage: APPLY 1 APPLICATION TO AFFECTED AREA THREE TIMES DAILY
  25. FISH OIL [Concomitant]
     Active Substance: FISH OIL
     Dosage: TAKE 1 CAPSULE BY MOUTH TWICE DAILY
  26. ZOFRAN [Concomitant]
     Active Substance: ONDANSETRON HYDROCHLORIDE
     Dosage: TAKE 1 TABLET BY MOUTH EVERY 8 HOURS AS NEEDED FOR NAUSEA/VOMITING
  27. POMALYST [Concomitant]
     Active Substance: POMALIDOMIDE
     Dosage: TAKE 1 CAPSULE (2MG) BY MOUTH ONCE DAILY FOR 21 DAYS. THEN OFF 1 WEEK.
  28. K-DUR [Concomitant]
     Active Substance: POTASSIUM CHLORIDE
     Dosage: TAKE 1 TABLET BY MOUTH ONCE DAILY
  29. KLOR-CON [Concomitant]
     Active Substance: POTASSIUM CHLORIDE
     Dosage: TAKE 1 TABLET BY MOUTH ONCE DAILY
  30. ADEMETIONINE [Concomitant]
     Active Substance: ADEMETIONINE
     Dosage: TAKE 800MG BY MOUTH ONCE DAILY
  31. XPOVIO [Concomitant]
     Active Substance: SELINEXOR
     Dosage: TAKE 1 TABLET (60MG) BY MOUTH ONE TIME A WEEK WITH A GLASS OF WATER
  32. ULTRAM ER [Concomitant]
     Active Substance: TRAMADOL HYDROCHLORIDE
     Dosage: TAKE 1 TABLET BY MOUTH EVERY 6 HOURS AS NEEDED FOR UP TO 30 DAYS
  33. HERBALS\TURMERIC [Concomitant]
     Active Substance: HERBALS\TURMERIC
     Dosage: TAKE 1 TABLET BY MOUTH TWICE DAILY
  34. ELIQUIS [Concomitant]
     Active Substance: APIXABAN
     Dosage: TAKE 1 TAB BY MOUTH ONCE DAILY
  35. TOPROL XL [Concomitant]
     Active Substance: METOPROLOL SUCCINATE
     Dosage: TAKE 1 TAB BY MOUTH ONCE DAILY
  36. ACYCLOVIR [Concomitant]
     Active Substance: ACYCLOVIR
  37. ALLOPURINOL [Concomitant]
     Active Substance: ALLOPURINOL
  38. APIXABAN [Concomitant]
     Active Substance: APIXABAN
  39. ARNICA MONTANA FLOWER [Concomitant]
     Active Substance: ARNICA MONTANA FLOWER
  40. CARBOXYMETHYLCELLULOSE [Concomitant]
     Active Substance: CARBOXYMETHYLCELLULOSE
  41. REFRESH TEARS [Concomitant]
     Active Substance: CARBOXYMETHYLCELLULOSE SODIUM
  42. VITAMIN D3 [Concomitant]
     Active Substance: CHOLECALCIFEROL

REACTIONS (3)
  - Neoplasm malignant [Unknown]
  - Off label use [Unknown]
  - Drug hypersensitivity [Unknown]
